FAERS Safety Report 9670404 (Version 2)
Quarter: 2013Q4

REPORT INFORMATION
  Report Type: Spontaneous
  Country: BR (occurrence: BR)
  Receive Date: 20131105
  Receipt Date: 20131127
  Transmission Date: 20140711
  Serious: Yes (Other)
  Sender: FDA-Public Use
  Company Number: BR-PFIZER INC-2013310186

PATIENT
  Age: 63 Year
  Sex: Female

DRUGS (4)
  1. XALATAN [Suspect]
     Indication: GLAUCOMA
     Dosage: 1 DROP EACH EYE (3 UG), ONCE A DAY (AT NIGHT)
     Route: 047
     Dates: start: 2010, end: 201305
  2. XALATAN [Suspect]
     Indication: CATARACT
     Dosage: 1 DROP IN LEFT EYE, AT NIGHT
     Route: 047
  3. TIMOPTOL [Suspect]
     Indication: GLAUCOMA
     Dosage: 2 DROPS EACH EYE (UNSPECIFIED DOSE), TWICE A DAY (IN THE MORNING AND AT NIGHT)
     Route: 047
     Dates: start: 2010, end: 201305
  4. TIMOPTOL [Suspect]
     Indication: CATARACT
     Dosage: 2 DROPS TWICE A DAY IN LEFT EYE IN MORNING AND AT NIGHT
     Route: 047

REACTIONS (3)
  - Glaucoma [Unknown]
  - Cataract [Unknown]
  - Off label use [Unknown]
